FAERS Safety Report 6551634-X (Version None)
Quarter: 2010Q1

REPORT INFORMATION
  Report Type: 
  Country: None (occurrence: None)
  Receive Date: 20100126
  Receipt Date: 20100118
  Transmission Date: 20100710
  Serious: Yes (Other)
  Sender: FDA-Public Use
  Company Number: US-ELI_LILLY_AND_COMPANY-US201001004106

PATIENT
  Sex: Female

DRUGS (18)
  1. BYETTA [Suspect]
     Indication: TYPE 2 DIABETES MELLITUS
     Dosage: 10 UG, 2/D
     Dates: start: 20070720, end: 20091203
  2. ALBUTEROL [Concomitant]
     Dosage: UNK, AS NEEDED
     Route: 055
  3. AVAPRO [Concomitant]
     Dosage: 150 MG, 2/D
  4. BACTRIM DS [Concomitant]
     Dosage: UNK, 2/D
  5. CARDIZEM CD [Concomitant]
     Dosage: 180 MG, 2/D
  6. CRESTOR [Concomitant]
     Dosage: 5 MG, EACH EVENING
  7. DETROL LA [Concomitant]
     Dosage: 4 MG, DAILY (1/D)
  8. DYAZIDE [Concomitant]
     Dosage: UNK, DAILY (1/D)
  9. FLAGYL [Concomitant]
     Dosage: 250 MG, 3/D
  10. PROZAC [Concomitant]
     Dosage: 40 MG, DAILY (1/D)
  11. SINGULAIR [Concomitant]
     Dosage: 10 MG, DAILY (1/D)
  12. TRAZODONE [Concomitant]
     Dosage: 50 MG, EACH EVENING
  13. SEREVENT [Concomitant]
     Dosage: UNK, DAILY (1/D)
     Route: 055
  14. TEKTURNA                           /01763601/ [Concomitant]
     Dosage: 150 MG, DAILY (1/D)
  15. VANIQA [Concomitant]
     Dosage: UNK, DAILY (1/D)
     Route: 061
  16. ATIVAN [Concomitant]
     Indication: ANXIETY
     Dosage: 0.5 MG, AS NEEDED
  17. Z-PAK [Concomitant]
     Dosage: 500 MG, DAILY (1/D)
  18. DARVOCET-N 100 [Concomitant]
     Dosage: UNK, AS NEEDED

REACTIONS (1)
  - PANCREATITIS ACUTE [None]
